FAERS Safety Report 12856138 (Version 1)
Quarter: 2016Q4

REPORT INFORMATION
  Report Type: Spontaneous
  Country: US (occurrence: US)
  Receive Date: 20161017
  Receipt Date: 20161017
  Transmission Date: 20170207
  Serious: Yes (Other)
  Sender: FDA-Public Use
  Company Number: None

PATIENT
  Age: 8 Year
  Sex: Male
  Weight: 34.2 kg

DRUGS (3)
  1. MONTELUKAST [Suspect]
     Active Substance: MONTELUKAST SODIUM
     Indication: ASTHMA
     Route: 048
     Dates: start: 20161011, end: 20161017
  2. ALBUTEROL HFA (PROAIR) [Concomitant]
  3. ADVAIR 45/21 [Concomitant]

REACTIONS (5)
  - Anger [None]
  - Aggression [None]
  - Mood altered [None]
  - Crying [None]
  - Emotional disorder [None]

NARRATIVE: CASE EVENT DATE: 20161011
